FAERS Safety Report 5710854-4 (Version None)
Quarter: 2008Q2

REPORT INFORMATION
  Report Type: 
  Country: None (occurrence: None)
  Receive Date: 20080417
  Receipt Date: 20080417
  Transmission Date: 20081010
  Serious: Yes (Hospitalization)
  Sender: FDA-Public Use
  Company Number: None

PATIENT
  Age: 49 Year
  Sex: Female
  Weight: 57.1532 kg

DRUGS (2)
  1. PEG-INTRON [Suspect]
     Indication: HEPATITIS C
     Dosage: 80MCG ONCE WEEKLY SQ
     Route: 058
     Dates: start: 20080201, end: 20080331
  2. RIBAVIRIN [Suspect]
     Indication: HEPATITIS C
     Dosage: 800MG  2 CAPSULES BID PO
     Route: 048
     Dates: start: 20080201, end: 20080331

REACTIONS (2)
  - BLOOD DISORDER [None]
  - INFECTION [None]
